FAERS Safety Report 18611173 (Version 1)
Quarter: 2020Q4

REPORT INFORMATION
  Report Type: Spontaneous
  Country: US (occurrence: US)
  Receive Date: 20201214
  Receipt Date: 20201214
  Transmission Date: 20210114
  Serious: No
  Sender: FDA-Public Use
  Company Number: US-TEVA-2020-US-1859141

PATIENT
  Age: 81 Year
  Sex: Female

DRUGS (8)
  1. LOSARTAN. [Concomitant]
     Active Substance: LOSARTAN
  2. AMLODIPINE [Concomitant]
     Active Substance: AMLODIPINE BESYLATE
  3. ZOLPIDEM [Concomitant]
     Active Substance: ZOLPIDEM TARTRATE
  4. HYDROXYZINE HCL [Concomitant]
     Active Substance: HYDROXYZINE HYDROCHLORIDE
  5. CLONIDINE ACTAVIS [Suspect]
     Active Substance: CLONIDINE
     Indication: HYPERTENSION
     Dosage: ORANGE-ROUND CLONIDINE
     Route: 065
     Dates: start: 202009
  6. DEXILANT [Concomitant]
     Active Substance: DEXLANSOPRAZOLE
  7. METFORMIN [Concomitant]
     Active Substance: METFORMIN HYDROCHLORIDE
  8. ENALAPRIL [Concomitant]
     Active Substance: ENALAPRIL

REACTIONS (7)
  - Agitation [Unknown]
  - Therapeutic product effect incomplete [Unknown]
  - Illness [Unknown]
  - Withdrawal syndrome [Unknown]
  - Headache [Unknown]
  - Anger [Unknown]
  - Condition aggravated [Unknown]
